FAERS Safety Report 19279223 (Version 1)
Quarter: 2021Q2

REPORT INFORMATION
  Report Type: Spontaneous
  Country: AR (occurrence: AR)
  Receive Date: 20210520
  Receipt Date: 20210520
  Transmission Date: 20210717
  Serious: Yes (Other)
  Sender: FDA-Public Use
  Company Number: AR-PFIZER INC-2020465084

PATIENT
  Age: 70 Year
  Sex: Female

DRUGS (1)
  1. XELJANZ [Suspect]
     Active Substance: TOFACITINIB CITRATE
     Dosage: UNK

REACTIONS (7)
  - Patella fracture [Unknown]
  - Fall [Unknown]
  - Limb injury [Unknown]
  - Bone disorder [Unknown]
  - Localised infection [Unknown]
  - Infection [Unknown]
  - Psoriasis [Unknown]
